FAERS Safety Report 17720188 (Version 2)
Quarter: 2020Q3

REPORT INFORMATION
  Report Type: Spontaneous
  Country: GR (occurrence: GR)
  Receive Date: 20200428
  Receipt Date: 20200701
  Transmission Date: 20201102
  Serious: Yes (Other)
  Sender: FDA-Public Use
  Company Number: GR-BRISTOL-MYERS SQUIBB COMPANY-BMS-2020-034211

PATIENT
  Sex: Male

DRUGS (2)
  1. YERVOY [Suspect]
     Active Substance: IPILIMUMAB
     Indication: METASTATIC RENAL CELL CARCINOMA
     Route: 065
  2. OPDIVO [Suspect]
     Active Substance: NIVOLUMAB
     Indication: METASTATIC RENAL CELL CARCINOMA
     Dosage: UNAVAILABLE
     Route: 065
     Dates: start: 201909

REACTIONS (3)
  - Anaemia [Unknown]
  - Low density lipoprotein increased [Unknown]
  - Haemolysis [Unknown]
